FAERS Safety Report 12433992 (Version 1)
Quarter: 2016Q2

REPORT INFORMATION
  Report Type: Spontaneous
  Country: AU (occurrence: AU)
  Receive Date: 20160603
  Receipt Date: 20160603
  Transmission Date: 20160815
  Serious: Yes (Hospitalization, Other)
  Sender: FDA-Public Use
  Company Number: AU-MYLANLABS-2016M1022825

PATIENT

DRUGS (7)
  1. DOXORUBICIN [Suspect]
     Active Substance: DOXORUBICIN
     Indication: HODGKIN^S DISEASE
     Dosage: INFUSIONS ON DAYS 1 AND 15 OF EACH 28-DAY CYCLE
     Route: 065
  2. IMATINIB [Suspect]
     Active Substance: IMATINIB
     Indication: PNEUMONITIS
     Route: 065
  3. VINBLASTINE [Suspect]
     Active Substance: VINBLASTINE
     Indication: HODGKIN^S DISEASE
     Dosage: INFUSIONS ON DAYS 1 AND 15 OF EACH 28-DAY CYCLE
     Route: 065
  4. BLEOMYCIN [Suspect]
     Active Substance: BLEOMYCIN SULFATE
     Indication: HODGKIN^S DISEASE
     Dosage: INFUSIONS ON DAYS 1 AND 15 OF EACH 28-DAY CYCLE
     Route: 065
  5. ENOXAPARIN SODIUM. [Concomitant]
     Active Substance: ENOXAPARIN SODIUM
     Indication: THROMBOSIS PROPHYLAXIS
     Route: 065
  6. ESOMEPRAZOLE [Concomitant]
     Active Substance: ESOMEPRAZOLE
     Route: 065
  7. DACARBAZINE. [Suspect]
     Active Substance: DACARBAZINE
     Indication: HODGKIN^S DISEASE
     Dosage: INFUSIONS ON DAYS 1 AND 15 OF EACH 28-DAY CYCLE
     Route: 065

REACTIONS (6)
  - Thrombocytopenia [Unknown]
  - Weight decreased [Unknown]
  - Acute respiratory distress syndrome [Unknown]
  - Pneumonitis [Unknown]
  - Pneumothorax [Unknown]
  - Gastrointestinal haemorrhage [Unknown]
